FAERS Safety Report 17868057 (Version 3)
Quarter: 2020Q3

REPORT INFORMATION
  Report Type: Spontaneous
  Country: AT (occurrence: AT)
  Receive Date: 20200605
  Receipt Date: 20200713
  Transmission Date: 20201103
  Serious: Yes (Death, Other)
  Sender: FDA-Public Use
  Company Number: AT-B.I. PHARMACEUTICALS,INC./RIDGEFIELD-2020-BI-027768

PATIENT
  Age: 7 Decade
  Sex: Male

DRUGS (1)
  1. SPIOLTO [Suspect]
     Active Substance: OLODATEROL HYDROCHLORIDE\TIOTROPIUM BROMIDE MONOHYDRATE
     Indication: CHRONIC OBSTRUCTIVE PULMONARY DISEASE
     Route: 065

REACTIONS (7)
  - Femoral neck fracture [Fatal]
  - Fall [Fatal]
  - Pleural effusion [Unknown]
  - Lung adenocarcinoma stage III [Unknown]
  - Metastases to bone [Unknown]
  - Vomiting [Unknown]
  - Oesophagitis [Unknown]
